FAERS Safety Report 18055624 (Version 1)
Quarter: 2020Q3

REPORT INFORMATION
  Report Type: Spontaneous
  Country: FR (occurrence: FR)
  Receive Date: 20200722
  Receipt Date: 20200722
  Transmission Date: 20201103
  Serious: Yes (Hospitalization)
  Sender: FDA-Public Use
  Company Number: FR-TEVA-2020-FR-1803177

PATIENT
  Age: 80 Year
  Sex: Male
  Weight: 83 kg

DRUGS (5)
  1. HYDROXYZINE (CHLORHYDRATE D^) [Suspect]
     Active Substance: HYDROXYZINE HYDROCHLORIDE
     Indication: ANXIETY
     Dosage: 25 MG
     Route: 048
     Dates: start: 20200615, end: 20200617
  2. TAZOBACTAM [Suspect]
     Active Substance: TAZOBACTAM
     Indication: SEPTIC SHOCK
     Dosage: 1.5 GRAM
     Route: 042
     Dates: start: 20200614, end: 20200618
  3. NEFOPAM (CHLORHYDRATE DE) [Suspect]
     Active Substance: NEFOPAM HYDROCHLORIDE
     Indication: ENDOTRACHEAL INTUBATION
     Dosage: 120 MG
     Route: 042
     Dates: start: 20200614, end: 20200617
  4. PIPERACILLINE SODIQUE [Suspect]
     Active Substance: PIPERACILLIN
     Indication: SEPTIC SHOCK
     Dosage: 12 GRAM
     Route: 042
     Dates: start: 20200614, end: 20200618
  5. LOXAPINE (SUCCINATE DE) [Suspect]
     Active Substance: LOXAPINE SUCCINATE
     Indication: AGITATION
     Dosage: 25 MG
     Route: 048
     Dates: start: 20200619, end: 20200619

REACTIONS (1)
  - Encephalopathy [Recovered/Resolved]

NARRATIVE: CASE EVENT DATE: 20200617
